FAERS Safety Report 8003420-1 (Version None)
Quarter: 2011Q4

REPORT INFORMATION
  Report Type: 
  Country: None (occurrence: None)
  Receive Date: 20111222
  Receipt Date: 20111201
  Transmission Date: 20120403
  Serious: Yes (Other)
  Sender: FDA-Public Use
  Company Number: FR-PFIZER INC-K201100321

PATIENT
  Age: 79 Year
  Sex: Female

DRUGS (6)
  1. FUROSEMIDE [Concomitant]
     Dosage: 40 MG, UNK
  2. RAMIPRIL [Suspect]
     Dosage: 2.5 MG, 2X/DAY
     Route: 048
     Dates: start: 20090101
  3. SALMON OIL [Concomitant]
     Dosage: UNK
  4. MARCUMAR [Suspect]
     Indication: PRODUCT USED FOR UNKNOWN INDICATION
     Dosage: 3 MG ONCE DAILY IN THE EVENING
     Route: 065
  5. MAGNESIUM VERLA [Concomitant]
     Dosage: UNK
  6. CRATAEGUS LAEVIGATA [Concomitant]
     Dosage: UNK

REACTIONS (4)
  - FATIGUE [None]
  - PARALYSIS [None]
  - ALOPECIA [None]
  - HYPOAESTHESIA [None]
